FAERS Safety Report 21043354 (Version 1)
Quarter: 2022Q3

REPORT INFORMATION
  Report Type: Spontaneous
  Country: CN (occurrence: CN)
  Receive Date: 20220705
  Receipt Date: 20220705
  Transmission Date: 20221026
  Serious: Yes (Hospitalization, Other)
  Sender: FDA-Public Use
  Company Number: CN-PFIZER INC-PV202200013603

PATIENT
  Age: 50 Year
  Sex: Male
  Weight: 61 kg

DRUGS (6)
  1. CYTARABINE [Suspect]
     Active Substance: CYTARABINE
     Indication: Acute leukaemia
     Dosage: D1-7 AS REPORTED
     Route: 041
     Dates: start: 20220524, end: 20220530
  2. IDARUBICIN [Suspect]
     Active Substance: IDARUBICIN
     Indication: Acute leukaemia
     Dosage: D1-3 AS REPORTED
     Route: 041
     Dates: start: 20220524, end: 20220524
  3. VENETOCLAX [Concomitant]
     Active Substance: VENETOCLAX
     Indication: Acute leukaemia
     Dosage: D1-14 AS REPORTED
  4. CYCLOPHOSPHAMIDE [Concomitant]
     Active Substance: CYCLOPHOSPHAMIDE
  5. ONDANSETRON [Concomitant]
     Active Substance: ONDANSETRON
  6. SODIUM BICARBONATE [Concomitant]
     Active Substance: SODIUM BICARBONATE

REACTIONS (5)
  - Myelosuppression [Recovering/Resolving]
  - Immune system disorder [Recovering/Resolving]
  - Infection [Recovering/Resolving]
  - Septic shock [Recovering/Resolving]
  - Lip ulceration [Recovering/Resolving]

NARRATIVE: CASE EVENT DATE: 20220601
